FAERS Safety Report 18255079 (Version 1)
Quarter: 2020Q3

REPORT INFORMATION
  Report Type: Report from Study
  Country: None (occurrence: HR)
  Receive Date: 20200910
  Receipt Date: 20200910
  Transmission Date: 20201103
  Serious: Yes (Other)
  Sender: FDA-Public Use
  Company Number: HR-ABBVIE-20P-216-3552731-00

PATIENT
  Age: 73 Year
  Sex: Male

DRUGS (8)
  1. VENETOCLAX. [Suspect]
     Active Substance: VENETOCLAX
     Route: 048
     Dates: end: 20200527
  2. VENETOCLAX. [Suspect]
     Active Substance: VENETOCLAX
     Dosage: DISCONTINUED FOR 7 DAYS DUE TO AE
     Route: 048
     Dates: start: 20190725, end: 20190925
  3. VENETOCLAX. [Suspect]
     Active Substance: VENETOCLAX
     Route: 048
     Dates: end: 20200422
  4. CYTARABINE. [Concomitant]
     Active Substance: CYTARABINE
     Indication: PRODUCT USED FOR UNKNOWN INDICATION
     Dates: start: 201907
  5. VENETOCLAX. [Suspect]
     Active Substance: VENETOCLAX
     Route: 048
     Dates: end: 20200522
  6. VENETOCLAX. [Suspect]
     Active Substance: VENETOCLAX
     Indication: ACUTE MYELOID LEUKAEMIA
     Route: 048
     Dates: start: 20190722, end: 20190725
  7. VENETOCLAX. [Suspect]
     Active Substance: VENETOCLAX
     Dosage: DISCONTINUED FOR 7 DAYS DUE TO AE
     Route: 048
     Dates: end: 20191028
  8. VENETOCLAX. [Suspect]
     Active Substance: VENETOCLAX
     Dosage: DISCONTINUED FOR 7 DAYS DUE TO AE
     Route: 050
     Dates: start: 20200227, end: 20200320

REACTIONS (7)
  - Cytopenia [Unknown]
  - Thrombocytopenia [Unknown]
  - Thrombocytopenia [Unknown]
  - Neutropenia [Unknown]
  - Thrombocytopenia [Unknown]
  - Cytopenia [Unknown]
  - Neutropenia [Unknown]

NARRATIVE: CASE EVENT DATE: 20190925
